FAERS Safety Report 11409500 (Version 1)
Quarter: 2015Q3

REPORT INFORMATION
  Report Type: Report from Study
  Country: US (occurrence: US)
  Receive Date: 20150824
  Receipt Date: 20150824
  Transmission Date: 20151125
  Serious: No
  Sender: FDA-Public Use
  Company Number: PHEH2015US001561

PATIENT
  Sex: Male
  Weight: 93.42 kg

DRUGS (1)
  1. GILENYA [Suspect]
     Active Substance: FINGOLIMOD HYDROCHLORIDE
     Indication: MULTIPLE SCLEROSIS
     Dosage: 0.5 MG, QD
     Route: 048
     Dates: start: 20141017

REACTIONS (5)
  - Weight decreased [Unknown]
  - Conjunctivitis [Recovered/Resolved]
  - Erythema [Recovering/Resolving]
  - Maculopathy [Unknown]
  - Hypoaesthesia [Recovering/Resolving]
